FAERS Safety Report 13637831 (Version 5)
Quarter: 2017Q3

REPORT INFORMATION
  Report Type: Spontaneous
  Country: US (occurrence: US)
  Receive Date: 20170609
  Receipt Date: 20170914
  Transmission Date: 20171127
  Serious: Yes (Life-Threatening, Hospitalization, Other)
  Sender: FDA-Public Use
  Company Number: US-PFIZER INC-2017253536

PATIENT
  Age: 74 Year
  Sex: Female

DRUGS (11)
  1. DEXTROSE. [Suspect]
     Active Substance: DEXTROSE
     Dosage: 25 G, UNK (SECOND INFUSION)
     Route: 041
  2. PAROXETINE. [Concomitant]
     Active Substance: PAROXETINE
     Dosage: UNK UNK, DAILY
  3. DEXTROSE. [Suspect]
     Active Substance: DEXTROSE
     Indication: HYPOGLYCAEMIA
     Dosage: 25 G, UNK
     Route: 042
  4. NPH INSULIN [Concomitant]
     Active Substance: INSULIN BEEF
     Dosage: 90 IU, DAILY (55 UNITS (U) IN THE MORNING AND 35U NIGHTLY)
  5. ASPIRIN /00002701/ [Concomitant]
     Active Substance: ASPIRIN
     Dosage: UNK UNK, DAILY
  6. BUMETANIDE. [Concomitant]
     Active Substance: BUMETANIDE
     Dosage: UNK UNK, DAILY
  7. METOLAZONE. [Concomitant]
     Active Substance: METOLAZONE
     Dosage: UNK UNK, DAILY
  8. CARVEDILOL. [Concomitant]
     Active Substance: CARVEDILOL
     Dosage: UNK UNK, DAILY
  9. SPIRONOLACTONE. [Suspect]
     Active Substance: SPIRONOLACTONE
     Indication: CHRONIC KIDNEY DISEASE
     Dosage: UNK UNK, DAILY
  10. SIMVASTATIN. [Concomitant]
     Active Substance: SIMVASTATIN
     Dosage: UNK UNK, DAILY
  11. POTASSIUM CHLORIDE. [Concomitant]
     Active Substance: POTASSIUM CHLORIDE
     Dosage: UNK UNK, DAILY

REACTIONS (3)
  - Cardiac arrest [Recovering/Resolving]
  - Hyperkalaemia [Recovering/Resolving]
  - Blood aldosterone abnormal [Recovering/Resolving]
